FAERS Safety Report 10490565 (Version 3)
Quarter: 2014Q4

REPORT INFORMATION
  Report Type: Spontaneous
  Country: IL (occurrence: IL)
  Receive Date: 20141002
  Receipt Date: 20141007
  Transmission Date: 20150528
  Serious: Yes (Hospitalization, Other)
  Sender: FDA-Public Use
  Company Number: PHHY2014IL120233

PATIENT
  Age: 77 Year
  Sex: Male

DRUGS (1)
  1. EXELON PATCH [Suspect]
     Active Substance: RIVASTIGMINE
     Indication: DEMENTIA ALZHEIMER^S TYPE
     Dosage: 18 MG DAILY (DAILY DOSE: 9.5MG/24HOURS)
     Route: 062
     Dates: start: 20140119, end: 20140802

REACTIONS (7)
  - Erythema [Unknown]
  - Rash generalised [Unknown]
  - Rash [Unknown]
  - Sjogren^s syndrome [Recovered/Resolved]
  - Flushing [Unknown]
  - Urticaria [Unknown]
  - Antiphospholipid syndrome [Unknown]
